FAERS Safety Report 25779326 (Version 5)
Quarter: 2025Q4

REPORT INFORMATION
  Report Type: Spontaneous
  Country: US (occurrence: US)
  Receive Date: 20250909
  Receipt Date: 20251205
  Transmission Date: 20260118
  Serious: Yes (Other)
  Sender: PFIZER
  Company Number: US-PFIZER INC-202500177072

PATIENT
  Age: 72 Year
  Sex: Female
  Weight: 86.18 kg

DRUGS (4)
  1. GENOTROPIN [Suspect]
     Active Substance: SOMATROPIN
     Indication: Rheumatoid arthritis
     Dosage: 0.02 ML, DAILY (STARTED 3 TO 4 MONTHS)
     Dates: start: 202412
  2. GENOTROPIN [Suspect]
     Active Substance: SOMATROPIN
     Indication: Arthralgia
     Dosage: 0.02 MG, DAILY
  3. GENOTROPIN [Suspect]
     Active Substance: SOMATROPIN
     Dosage: UNK, 1X/DAY
     Route: 030
  4. TRAMADOL [Concomitant]
     Active Substance: TRAMADOL
     Indication: Arthritis
     Dosage: 1-2 DAILY

REACTIONS (8)
  - Knee arthroplasty [Recovered/Resolved]
  - Off label use [Recovered/Resolved]
  - Drug dose omission by device [Recovered/Resolved]
  - Device use error [Recovered/Resolved]
  - Device breakage [Recovered/Resolved]
  - Device leakage [Recovered/Resolved]
  - Product label confusion [Unknown]
  - Incorrect route of product administration [Unknown]

NARRATIVE: CASE EVENT DATE: 20241201
